FAERS Safety Report 9593011 (Version 1)
Quarter: 2013Q3

REPORT INFORMATION
  Report Type: Spontaneous
  Country: US (occurrence: None)
  Receive Date: 20130930
  Receipt Date: 20130930
  Transmission Date: 20140515
  Serious: Yes (Other)
  Sender: FDA-Public Use
  Company Number: 1000047476

PATIENT
  Age: 75 Year
  Sex: Female

DRUGS (1)
  1. LINZESS (LINACLOTIDE) (145 MICROGRAM, CAPSULES) [Suspect]
     Indication: CONSTIPATION
     Dosage: 145 MCG (145 MCG, 1 IN 1 D), ORAL
     Route: 048
     Dates: start: 20130725, end: 20130730

REACTIONS (7)
  - Abdominal pain upper [None]
  - Headache [None]
  - Abdominal distension [None]
  - Hyperhidrosis [None]
  - Dizziness [None]
  - Decreased appetite [None]
  - Off label use [None]
